FAERS Safety Report 13717049 (Version 1)
Quarter: 2017Q3

REPORT INFORMATION
  Report Type: Spontaneous
  Country: US (occurrence: US)
  Receive Date: 20170704
  Receipt Date: 20170704
  Transmission Date: 20171127
  Serious: Yes (Other)
  Sender: FDA-Public Use
  Company Number: None

PATIENT
  Age: 50 Year
  Sex: Male
  Weight: 95.4 kg

DRUGS (12)
  1. METOPROLOL SUCCINATE ER [Concomitant]
     Active Substance: METOPROLOL SUCCINATE
  2. METFORMIN [Concomitant]
     Active Substance: METFORMIN HYDROCHLORIDE
  3. ATORVASTATIN [Concomitant]
     Active Substance: ATORVASTATIN
  4. CPAP [Concomitant]
     Active Substance: DEVICE
  5. LYSINOPRIL [Concomitant]
  6. VITAMIN B12 [Concomitant]
     Active Substance: CYANOCOBALAMIN
  7. MAGNESUIM CITRATE [Concomitant]
  8. VICTOZA [Suspect]
     Active Substance: LIRAGLUTIDE
     Indication: BLOOD GLUCOSE INCREASED
     Dosage: ?          OTHER STRENGTH:MG;QUANTITY:1 INJECTION(S);?
     Route: 058
     Dates: start: 20160930, end: 20170629
  9. FIBER [Concomitant]
     Active Substance: PSYLLIUM HUSK
  10. ALLOPURINOL. [Concomitant]
     Active Substance: ALLOPURINOL
  11. MULTIVITAMIN [Concomitant]
     Active Substance: VITAMINS
  12. METHOTREXATE/FOLIC ACID [Concomitant]

REACTIONS (3)
  - Inhibitory drug interaction [None]
  - Eosinophil count abnormal [None]
  - Heart rate increased [None]

NARRATIVE: CASE EVENT DATE: 20170630
